FAERS Safety Report 4506696-8 (Version None)
Quarter: 2004Q4

REPORT INFORMATION
  Report Type: 
  Country: None (occurrence: None)
  Receive Date: 20041122
  Receipt Date: 20041026
  Transmission Date: 20050328
  Serious: Yes (Disabling)
  Sender: FDA-Public Use
  Company Number: US-MERCK-0410USA04016

PATIENT
  Age: 71 Year
  Sex: Female
  Weight: 71 kg

DRUGS (9)
  1. VIOXX [Suspect]
     Indication: ARTHRITIS
     Route: 048
     Dates: start: 20000619, end: 20020530
  2. VIOXX [Suspect]
     Route: 048
     Dates: end: 20030328
  3. VIOXX [Suspect]
     Indication: BACK PAIN
     Route: 048
     Dates: start: 20000619, end: 20020530
  4. VIOXX [Suspect]
     Route: 048
     Dates: end: 20030328
  5. PRILOSEC [Concomitant]
     Route: 065
  6. ZOCOR [Concomitant]
     Route: 048
     Dates: end: 20020530
  7. ATENOLOL [Concomitant]
     Route: 065
  8. LIBRAX CAPSULES [Concomitant]
     Route: 065
  9. NASACORT [Concomitant]
     Route: 055

REACTIONS (45)
  - ABDOMINAL DISTENSION [None]
  - AMNESIA [None]
  - BACK PAIN [None]
  - BLOOD PRESSURE SYSTOLIC INCREASED [None]
  - CAROTID ARTERY STENOSIS [None]
  - CATARACT NUCLEAR [None]
  - CEREBROVASCULAR ACCIDENT [None]
  - CONJUNCTIVITIS [None]
  - CRYING [None]
  - DECREASED APPETITE [None]
  - DEPRESSION [None]
  - DERMATITIS CONTACT [None]
  - DRUG INTOLERANCE [None]
  - DUODENITIS [None]
  - DYSPEPSIA [None]
  - ERUCTATION [None]
  - EXTRASYSTOLES [None]
  - EYE PRURITUS [None]
  - FATIGUE [None]
  - FEELING ABNORMAL [None]
  - FLATULENCE [None]
  - GASTRITIS [None]
  - HEADACHE [None]
  - HEMIANOPIA HOMONYMOUS [None]
  - HYPERLIPIDAEMIA [None]
  - KERATOCONJUNCTIVITIS SICCA [None]
  - LACRIMATION INCREASED [None]
  - MICTURITION URGENCY [None]
  - NAUSEA [None]
  - PALPITATIONS [None]
  - PHARYNGITIS [None]
  - POLLAKIURIA [None]
  - RASH PAPULAR [None]
  - RASH PRURITIC [None]
  - READING DISORDER [None]
  - RENAL DISORDER [None]
  - RHINORRHOEA [None]
  - SINUSITIS [None]
  - URETERIC STENOSIS [None]
  - URINARY HESITATION [None]
  - VERTEBRAL ARTERY STENOSIS [None]
  - VISION BLURRED [None]
  - VISUAL ACUITY REDUCED [None]
  - VISUAL DISTURBANCE [None]
  - VISUAL FIELD DEFECT [None]
